FAERS Safety Report 7320463-1 (Version None)
Quarter: 2011Q1

REPORT INFORMATION
  Report Type: 
  Country: None (occurrence: None)
  Receive Date: 20110228
  Receipt Date: 20110218
  Transmission Date: 20110831
  Serious: Yes (Other)
  Sender: FDA-Public Use
  Company Number: B0701481A

PATIENT
  Sex: Male
  Weight: 11 kg

DRUGS (24)
  1. CICLOSPORIN [Concomitant]
     Indication: IMMUNOSUPPRESSION
     Dosage: 44MG PER DAY
     Route: 065
     Dates: start: 20100731, end: 20100906
  2. METHOTREXATE [Concomitant]
     Indication: IMMUNOSUPPRESSION
     Dosage: 5MG PER DAY
     Route: 065
     Dates: start: 20100729, end: 20100803
  3. ZOFRAN [Concomitant]
     Dosage: 4MG PER DAY
     Route: 042
     Dates: start: 20100720, end: 20100726
  4. HAPTOGLOBIN [Concomitant]
     Dosage: 2IU3 PER DAY
     Route: 042
     Dates: start: 20100728, end: 20100728
  5. MORPHINE HYDROCHLORIDE [Concomitant]
     Dosage: 4MG PER DAY
     Dates: start: 20100804, end: 20100810
  6. NICARPINE [Concomitant]
     Dosage: 7.2MG PER DAY
     Route: 042
     Dates: start: 20100813, end: 20100823
  7. GRAN [Concomitant]
     Dates: start: 20100802, end: 20100808
  8. VANCOMYCIN [Concomitant]
     Dosage: 450MG PER DAY
     Route: 042
     Dates: start: 20100617, end: 20100816
  9. FRAGMIN [Concomitant]
     Dosage: 800IU PER DAY
     Route: 042
     Dates: start: 20100609, end: 20101009
  10. MEROPEN [Concomitant]
     Dosage: 1200MG PER DAY
     Route: 042
     Dates: start: 20100808, end: 20100814
  11. DENOSINE (GANCYCLOVIR) [Concomitant]
     Dosage: 100MG PER DAY
     Dates: start: 20100830, end: 20100913
  12. EXJADE [Concomitant]
     Dosage: 125MG PER DAY
     Route: 048
     Dates: start: 20100519, end: 20100721
  13. ALKERAN [Suspect]
     Indication: ALLOGENIC BONE MARROW TRANSPLANTATION THERAPY
     Dosage: 60MGM2 PER DAY
     Route: 042
     Dates: start: 20100724, end: 20100726
  14. TACROLIMUS [Concomitant]
     Indication: IMMUNOSUPPRESSION
     Dosage: .2MG PER DAY
     Route: 065
     Dates: start: 20100907
  15. URSO 250 [Concomitant]
     Dosage: 1MG PER DAY
     Route: 048
     Dates: start: 20100610
  16. RIVOTRIL [Concomitant]
     Dosage: 1.1MG PER DAY
     Route: 048
     Dates: start: 20100716, end: 20100725
  17. SODIUM NITROPRUSSIDE [Concomitant]
     Dosage: 7.2MG PER DAY
     Route: 042
     Dates: start: 20100812, end: 20100823
  18. BUSULFAN [Suspect]
     Indication: ALLOGENIC BONE MARROW TRANSPLANTATION THERAPY
     Dosage: 4.8MGK PER DAY
     Route: 042
     Dates: start: 20100720, end: 20100723
  19. DEXAMETHASONE [Concomitant]
     Indication: IMMUNOSUPPRESSION
     Dosage: 30IUAX PER DAY
     Route: 042
     Dates: start: 20100906, end: 20101008
  20. GASTER [Concomitant]
     Dosage: 8MG PER DAY
     Route: 042
     Dates: start: 20100802, end: 20100812
  21. BROACT [Concomitant]
     Dosage: 800MG PER DAY
     Route: 042
     Dates: start: 20100829, end: 20100905
  22. FUNGUARD [Concomitant]
     Dosage: 25MG PER DAY
     Route: 042
     Dates: start: 20100713, end: 20100904
  23. POLYMYXIN-B-SULFATE [Concomitant]
     Route: 048
     Dates: start: 20100716, end: 20100825
  24. ACIROVEC [Concomitant]
     Dosage: 150MG PER DAY
     Route: 042
     Dates: start: 20100720, end: 20100927

REACTIONS (3)
  - COAGULOPATHY [None]
  - ENGRAFTMENT SYNDROME [None]
  - VENOOCCLUSIVE LIVER DISEASE [None]
